FAERS Safety Report 9331080 (Version 1)
Quarter: 2013Q2

REPORT INFORMATION
  Report Type: Spontaneous
  Country: GB (occurrence: None)
  Receive Date: 20130531
  Receipt Date: 20130531
  Transmission Date: 20140414
  Serious: Yes (Hospitalization, Other)
  Sender: FDA-Public Use
  Company Number: 20130262

PATIENT
  Sex: Male
  Weight: 2.69 kg

DRUGS (3)
  1. OLANZAPINE [Suspect]
     Indication: BIPOLAR DISORDER
     Dosage: 10 MG -20 MG DAILY X?
  2. FOLIC ACID [Concomitant]
  3. DIAZEPAM [Concomitant]

REACTIONS (10)
  - Maternal drugs affecting foetus [None]
  - Hypoglycaemia neonatal [None]
  - Hyperinsulinism [None]
  - Metabolic acidosis [None]
  - Grunting [None]
  - Foetal growth restriction [None]
  - Small for dates baby [None]
  - Dyspnoea [None]
  - Feeding disorder neonatal [None]
  - Caesarean section [None]
